FAERS Safety Report 14684941 (Version 1)
Quarter: 2018Q1

REPORT INFORMATION
  Report Type: Spontaneous
  Country: GB (occurrence: GB)
  Receive Date: 20180327
  Receipt Date: 20180327
  Transmission Date: 20180509
  Serious: Yes (Other)
  Sender: FDA-Public Use
  Company Number: GB-CONCORDIA PHARMACEUTICALS INC.-E2B_00010679

PATIENT
  Age: 38 Year
  Sex: Male

DRUGS (5)
  1. RIBAVIRIN. [Suspect]
     Active Substance: RIBAVIRIN
     Indication: HEPATITIS E
     Dosage: TOTAL DAILY DOSE INCREASED TO 1000 MG
     Route: 065
     Dates: start: 201411
  2. RIBAVIRIN. [Suspect]
     Active Substance: RIBAVIRIN
     Dates: start: 201408
  3. ERYTHROPOIETIN [Concomitant]
     Active Substance: ERYTHROPOIETIN
     Indication: ANAEMIA
     Route: 065
  4. PREDNISOLONE. [Suspect]
     Active Substance: PREDNISOLONE
     Indication: IMMUNOSUPPRESSANT DRUG THERAPY
     Dosage: 10 MILLIGRAM DAILY;
     Route: 065
  5. TACROLIMUS. [Suspect]
     Active Substance: TACROLIMUS
     Indication: IMMUNOSUPPRESSANT DRUG THERAPY
     Route: 048

REACTIONS (2)
  - Anaemia [Unknown]
  - Hepatitis E [Recovered/Resolved]

NARRATIVE: CASE EVENT DATE: 201502
